FAERS Safety Report 20919640 (Version 1)
Quarter: 2022Q2

REPORT INFORMATION
  Report Type: Report from Study
  Country: BR (occurrence: BR)
  Receive Date: 20220606
  Receipt Date: 20220606
  Transmission Date: 20220720
  Serious: Yes (Other)
  Sender: FDA-Public Use
  Company Number: BR-ABBVIE-22K-020-4420442-00

PATIENT
  Sex: Female
  Weight: 72 kg

DRUGS (1)
  1. RINVOQ [Suspect]
     Active Substance: UPADACITINIB
     Indication: Rheumatoid arthritis
     Dosage: ONCE A DAY
     Route: 048
     Dates: start: 20210901

REACTIONS (8)
  - Gait inability [Unknown]
  - Loss of personal independence in daily activities [Unknown]
  - Osteoarthritis [Not Recovered/Not Resolved]
  - Paraesthesia [Recovering/Resolving]
  - Finger deformity [Not Recovered/Not Resolved]
  - Joint dislocation [Not Recovered/Not Resolved]
  - Musculoskeletal disorder [Not Recovered/Not Resolved]
  - Arthralgia [Not Recovered/Not Resolved]
